FAERS Safety Report 5532961-1 (Version None)
Quarter: 2007Q4

REPORT INFORMATION
  Report Type: 
  Country: None (occurrence: None)
  Receive Date: 20071129
  Receipt Date: 20071129
  Transmission Date: 20080405
  Serious: Yes (Other)
  Sender: FDA-Public Use
  Company Number: None

PATIENT
  Sex: Female
  Weight: 73.4827 kg

DRUGS (4)
  1. CHANTIX [Suspect]
     Indication: NICOTINE DEPENDENCE
     Dosage: 1MG  BID  PO
     Route: 048
     Dates: start: 20070328, end: 20071022
  2. CYMBALTA [Concomitant]
  3. ANTABUSE [Concomitant]
  4. DEPAKOTE [Concomitant]

REACTIONS (2)
  - ALCOHOL USE [None]
  - SUICIDE ATTEMPT [None]
